FAERS Safety Report 10557970 (Version 3)
Quarter: 2015Q1

REPORT INFORMATION
  Report Type: Report from Study
  Country: CN (occurrence: CN)
  Receive Date: 20141031
  Receipt Date: 20150117
  Transmission Date: 20150720
  Serious: Yes (Hospitalization, Other)
  Sender: FDA-Public Use
  Company Number: CN-BRISTOL-MYERS SQUIBB COMPANY-21525282

PATIENT
  Age: 62 Year
  Sex: Male

DRUGS (1)
  1. EXENATIDE [Suspect]
     Active Substance: EXENATIDE
     Indication: DIABETES MELLITUS
     Dosage: 5MCG(SEP-OCT2014)  10MCG(OCT2014-ONG)
     Route: 058
     Dates: start: 20140909, end: 201410

REACTIONS (2)
  - Cerebrovascular accident [Recovering/Resolving]
  - Hypoglycaemia [Recovered/Resolved]

NARRATIVE: CASE EVENT DATE: 20141016
